FAERS Safety Report 20883194 (Version 1)
Quarter: 2022Q2

REPORT INFORMATION
  Report Type: Spontaneous
  Country: CN (occurrence: None)
  Receive Date: 20220527
  Receipt Date: 20220527
  Transmission Date: 20220721
  Serious: Yes (Other)
  Sender: FDA-Public Use
  Company Number: 2022A196570

PATIENT
  Age: 47 Year
  Sex: Female
  Weight: 60 kg

DRUGS (1)
  1. IMFINZI [Suspect]
     Active Substance: DURVALUMAB
     Indication: Non-small cell lung cancer stage III
     Dosage: LAST DOSE WAS 620MG/CYCLE620.0MG EVERY CYCLE
     Route: 042
     Dates: start: 20201120, end: 202012

REACTIONS (1)
  - Radiation pneumonitis [Unknown]
